FAERS Safety Report 4706901-9 (Version None)
Quarter: 2005Q3

REPORT INFORMATION
  Report Type: 
  Country: None (occurrence: None)
  Receive Date: 20050701
  Receipt Date: 20041111
  Transmission Date: 20060218
  Serious: Yes (Death, Hospitalization)
  Sender: FDA-Public Use
  Company Number: HQ8667218JUL2000

PATIENT
  Age: 50 Year
  Sex: Female

DRUGS (8)
  1. MYLOTARG [Suspect]
     Indication: ACUTE MYELOID LEUKAEMIA
     Dosage: 4 MG/M^2 1X PER 1 DOS, INTRAVENOUS
     Route: 042
     Dates: start: 20000616, end: 20000616
  2. MEDROXYPROGESTERONE ACETTE (MEDROXYPROGESTERONE ACETTE) [Concomitant]
  3. ZOLPIDEM TARTRATE [Concomitant]
  4. ALLOPURINOL [Concomitant]
  5. ACYCLOVIR [Concomitant]
  6. CYCLOSPORINE [Concomitant]
  7. MULTIVITAMINS, PLAIN  (MULTIVITAMINS, PLAIN) [Concomitant]
  8. ITRACONAZOLE [Concomitant]

REACTIONS (21)
  - ACUTE MYELOID LEUKAEMIA [None]
  - ACUTE RESPIRATORY DISTRESS SYNDROME [None]
  - ARTHRALGIA [None]
  - ASPARTATE AMINOTRANSFERASE INCREASED [None]
  - ASTHENIA [None]
  - BLOOD BILIRUBIN INCREASED [None]
  - BLOOD PRESSURE INCREASED [None]
  - BLOOD UREA INCREASED [None]
  - HAEMATOCRIT DECREASED [None]
  - HEART RATE INCREASED [None]
  - HYPERKALAEMIA [None]
  - HYPOKINESIA [None]
  - HYPOXIA [None]
  - LUNG INFILTRATION [None]
  - MALAISE [None]
  - MALIGNANT NEOPLASM PROGRESSION [None]
  - MYALGIA [None]
  - PAIN [None]
  - THERAPY NON-RESPONDER [None]
  - VENOOCCLUSIVE LIVER DISEASE [None]
  - WHITE BLOOD CELL COUNT INCREASED [None]
